FAERS Safety Report 11191668 (Version 1)
Quarter: 2015Q2

REPORT INFORMATION
  Report Type: Spontaneous
  Country: IT (occurrence: None)
  Receive Date: 20150612
  Receipt Date: 20150612
  Transmission Date: 20150821
  Serious: Yes (Disabling)
  Sender: FDA-Public Use
  Company Number: FK201502656

PATIENT
  Age: 66 Year
  Sex: Female

DRUGS (1)
  1. ZOLEDRONIC ACID (MANUFACTURER UNKNOWN) (ZOLEDRONIC ACID) (ZOLEDRONIC ACID) [Suspect]
     Active Substance: ZOLEDRONIC ACID
     Indication: METASTASES TO BONE
     Route: 042
     Dates: start: 20100501, end: 20110801

REACTIONS (3)
  - Purulent discharge [None]
  - Osteonecrosis of jaw [None]
  - Swelling face [None]

NARRATIVE: CASE EVENT DATE: 20121015
